FAERS Safety Report 5908565-5 (Version None)
Quarter: 2008Q4

REPORT INFORMATION
  Report Type: 
  Country: None (occurrence: None)
  Receive Date: 20081001
  Receipt Date: 20080916
  Transmission Date: 20090506
  Serious: Yes (Hospitalization)
  Sender: FDA-Public Use
  Company Number: B0538543A

PATIENT
  Age: 8 Year
  Sex: Male

DRUGS (6)
  1. MELPHALAN (FORMULATION UNKNOWN) (MELPHALAN) [Suspect]
     Indication: SHWACHMAN-DIAMOND SYNDROME
     Dosage: 140 MG/M2/SINGLE DOSE
  2. CAMPATH [Suspect]
     Indication: SHWACHMAN-DIAMOND SYNDROME
     Dosage: INTRAVENOUS
     Route: 042
  3. FLUDARABINE PHOSPHATE [Suspect]
     Indication: SHWACHMAN-DIAMOND SYNDROME
     Dosage: 30 MG/M2/CYCLIC
  4. CYCLOSPORINE [Concomitant]
  5. METHOTREXATE [Concomitant]
  6. METHYLPREDNISOLONE [Concomitant]

REACTIONS (7)
  - APOPTOSIS [None]
  - DIARRHOEA [None]
  - DUODENITIS [None]
  - EPSTEIN-BARR VIRUS INFECTION [None]
  - HYPERGLYCAEMIA [None]
  - LUNG INFECTION PSEUDOMONAL [None]
  - VOMITING [None]
